FAERS Safety Report 8080420-7 (Version None)
Quarter: 2012Q1

REPORT INFORMATION
  Report Type: 
  Country: None (occurrence: None)
  Receive Date: 20120130
  Receipt Date: 20120125
  Transmission Date: 20120608
  Serious: Yes (Hospitalization)
  Sender: FDA-Public Use
  Company Number: DE-BAYER-2011-115695

PATIENT
  Age: 64 Year
  Sex: Female

DRUGS (1)
  1. BETASERON [Suspect]
     Indication: MULTIPLE SCLEROSIS
     Dosage: UNK
     Route: 058
     Dates: start: 20070228, end: 20110720

REACTIONS (50)
  - BREATH ODOUR [None]
  - BLISTER [None]
  - NAIL DISCOLOURATION [None]
  - DIZZINESS [None]
  - INJECTION SITE PAIN [None]
  - DYSPEPSIA [None]
  - MUSCULAR WEAKNESS [None]
  - ASTHENIA [None]
  - OEDEMA PERIPHERAL [None]
  - DEPRESSED MOOD [None]
  - MUSCULOSKELETAL STIFFNESS [None]
  - MALAISE [None]
  - ADVERSE DRUG REACTION [None]
  - MADAROSIS [None]
  - GINGIVAL BLEEDING [None]
  - DYSPHONIA [None]
  - MUCOSAL DRYNESS [None]
  - PAIN IN EXTREMITY [None]
  - NAIL GROWTH ABNORMAL [None]
  - LYMPHADENOPATHY [None]
  - URINARY INCONTINENCE [None]
  - PRURITUS [None]
  - TONGUE DISCOLOURATION [None]
  - SWELLING FACE [None]
  - JOINT SWELLING [None]
  - HEADACHE [None]
  - DYSPNOEA [None]
  - BACK PAIN [None]
  - MICTURITION URGENCY [None]
  - RASH [None]
  - DRY MOUTH [None]
  - EYE PRURITUS [None]
  - SKIN FISSURES [None]
  - NAIL HYPERTROPHY [None]
  - HYPOAESTHESIA [None]
  - RHINORRHOEA [None]
  - COUGH [None]
  - INJECTION SITE INFLAMMATION [None]
  - MOOD ALTERED [None]
  - ACUTE ABDOMEN [None]
  - DRY EYE [None]
  - HYPERKERATOSIS [None]
  - VISUAL IMPAIRMENT [None]
  - CONSTIPATION [None]
  - INJECTION SITE REACTION [None]
  - ACTIVITIES OF DAILY LIVING IMPAIRED [None]
  - THYROID DISORDER [None]
  - ALOPECIA [None]
  - OEDEMA [None]
  - MYALGIA [None]
